FAERS Safety Report 8985211 (Version 4)
Quarter: 2013Q3

REPORT INFORMATION
  Report Type: Report from Study
  Country: FR (occurrence: FR)
  Receive Date: 20121226
  Receipt Date: 20130829
  Transmission Date: 20140515
  Serious: Yes (Death, Hospitalization, Other)
  Sender: FDA-Public Use
  Company Number: FR-PFIZER INC-FR-WYE-G06084110

PATIENT
  Age: 83 Year
  Sex: Male
  Weight: 78 kg

DRUGS (3)
  1. TORISEL [Suspect]
     Indication: MANTLE CELL LYMPHOMA
     Dosage: 175 MG, UNK
     Route: 042
     Dates: start: 20100309, end: 20100309
  2. TORISEL [Suspect]
     Dosage: 100 MG, UNK
     Route: 042
     Dates: start: 20100316, end: 20100316
  3. TORISEL [Suspect]
     Dosage: 175 MG, UNK
     Route: 042
     Dates: start: 20100323, end: 20100323

REACTIONS (21)
  - Septic shock [Fatal]
  - Asthenia [Fatal]
  - Pancytopenia [Fatal]
  - Altered state of consciousness [Fatal]
  - Asthenia [Unknown]
  - Thrombocytopenia [Unknown]
  - Mucosal inflammation [Recovered/Resolved with Sequelae]
  - Renal failure [Recovered/Resolved with Sequelae]
  - Dehydration [Recovered/Resolved with Sequelae]
  - Haemoglobin decreased [Unknown]
  - White blood cell count decreased [Unknown]
  - Weight decreased [Unknown]
  - General physical health deterioration [Recovered/Resolved with Sequelae]
  - Purpura [Unknown]
  - Neutrophil count decreased [Unknown]
  - Tooth abscess [Unknown]
  - Hallucination [Unknown]
  - Diarrhoea [Unknown]
  - Stomatitis [Unknown]
  - Pharyngeal lesion [Unknown]
  - Mucosal dryness [Unknown]
